FAERS Safety Report 10332810 (Version 4)
Quarter: 2014Q4

REPORT INFORMATION
  Report Type: Report from Study
  Country: IT (occurrence: IT)
  Receive Date: 20140722
  Receipt Date: 20141013
  Transmission Date: 20150528
  Serious: Yes (Death, Hospitalization)
  Sender: FDA-Public Use
  Company Number: IT-MERCK-1405ITA007135

PATIENT
  Age: 61 Year
  Sex: Male
  Weight: 71 kg

DRUGS (10)
  1. NADROPARIN CALCIUM [Concomitant]
     Active Substance: NADROPARIN CALCIUM
     Indication: THROMBOSIS PROPHYLAXIS
     Dosage: 0.4 ML, QD
     Route: 058
     Dates: start: 201111, end: 20140517
  2. CEFTRIAXONE SODIUM. [Suspect]
     Active Substance: CEFTRIAXONE SODIUM
     Indication: INFECTION PROPHYLAXIS
     Dosage: 1000 MG, QD, TOTAL DAILY DOSE:1000MG
     Route: 030
     Dates: start: 20140502, end: 20140511
  3. INDOMETHACIN. [Concomitant]
     Active Substance: INDOMETHACIN
     Indication: TUMOUR ASSOCIATED FEVER
     Dosage: 50 MG, QD
     Route: 048
     Dates: start: 20140419, end: 20140505
  4. DEURSIL [Concomitant]
     Active Substance: URSODIOL
     Indication: BILE DUCT EXPLORATION
     Dosage: 450 MG, QD
     Route: 048
     Dates: start: 20140430
  5. FENTANYL. [Concomitant]
     Active Substance: FENTANYL
     Indication: ABDOMINAL PAIN
     Dosage: TOTAL DAILY DOSE: 25 MICROGRAM/H,FREQUENCY:OTHER, STRENGTH 25 MICROGRAM/H
     Route: 062
     Dates: start: 20140429, end: 20140512
  6. RANITIDINE [Concomitant]
     Active Substance: RANITIDINE\RANITIDINE HYDROCHLORIDE
     Indication: PROPHYLAXIS AGAINST GASTROINTESTINAL ULCER
     Dosage: 150 MG, QD
     Route: 048
     Dates: start: 201311, end: 20140517
  7. TACHIDOL [Concomitant]
     Active Substance: ACETAMINOPHEN\CODEINE PHOSPHATE
     Indication: ABDOMINAL PAIN
     Dosage: 530 MG, TID
     Route: 048
     Dates: start: 20140429, end: 20140512
  8. PEMBROLIZUMAB. [Suspect]
     Active Substance: PEMBROLIZUMAB
     Indication: BILE DUCT ADENOCARCINOMA
     Dosage: 10 MG/KG, QOW (GIVEN ONCE)
     Route: 042
     Dates: start: 20140430, end: 20140430
  9. FERRIC GLUCONATE [Concomitant]
     Indication: ANAEMIA
     Dosage: 80 MG, BID
     Route: 048
     Dates: start: 20140429, end: 20140502
  10. DOMPERIDONE [Concomitant]
     Active Substance: DOMPERIDONE
     Indication: DYSPEPSIA
     Dosage: 5 MG, BID
     Route: 048
     Dates: start: 20140430

REACTIONS (2)
  - Malignant neoplasm progression [Fatal]
  - Autoimmune haemolytic anaemia [Recovering/Resolving]

NARRATIVE: CASE EVENT DATE: 20140502
